FAERS Safety Report 8989441 (Version 1)
Quarter: 2012Q4

REPORT INFORMATION
  Report Type: 
  Country: FR (occurrence: FR)
  Receive Date: 20121227
  Receipt Date: 20121227
  Transmission Date: 20130627
  Serious: Yes (Hospitalization)
  Sender: FDA-Public Use
  Company Number: FR-WATSON-2012-22699

PATIENT
  Sex: Male

DRUGS (3)
  1. RAPAFLO (WATSON LABORATORIES) [Suspect]
     Indication: BENIGN PROSTATIC HYPERPLASIA
     Dosage: 1 DF; QD
     Route: 048
     Dates: start: 201012
  2. FINASTERIDE [Concomitant]
     Indication: PRODUCT USED FOR UNKNOWN INDICATION
     Dosage: UNK
     Route: 065
  3. DEPAKINE                           /00228501/ [Concomitant]
     Indication: PRODUCT USED FOR UNKNOWN INDICATION
     Dosage: UNK
     Route: 065

REACTIONS (2)
  - Varicose vein [Not Recovered/Not Resolved]
  - Condition aggravated [Not Recovered/Not Resolved]
